FAERS Safety Report 8771939 (Version 1)
Quarter: 2012Q4

REPORT INFORMATION
  Report Type: Report from Study
  Country: CA (occurrence: CA)
  Receive Date: 20120906
  Receipt Date: 20120906
  Transmission Date: 20130627
  Serious: Yes (Other)
  Sender: FDA-Public Use
  Company Number: CA-JNJFOC-20120813890

PATIENT
  Sex: Female
  Weight: 68 kg

DRUGS (6)
  1. REMICADE [Suspect]
     Indication: COLITIS ULCERATIVE
     Dosage: dose: 400 (unit unspecified)
     Route: 042
     Dates: start: 2012
  2. FERROUS GLUCONATE [Concomitant]
     Route: 065
  3. VITAMIN B12 [Concomitant]
     Route: 065
  4. VITAMIN C [Concomitant]
     Route: 065
  5. OMEGA 3 [Concomitant]
     Route: 065
  6. VITAMIN D [Concomitant]
     Route: 065

REACTIONS (1)
  - Uterine polyp [Unknown]
